FAERS Safety Report 12211179 (Version 2)
Quarter: 2016Q2

REPORT INFORMATION
  Report Type: Report from Study
  Country: NL (occurrence: NL)
  Receive Date: 20160325
  Receipt Date: 20160408
  Transmission Date: 20160815
  Serious: Yes (Hospitalization, Other)
  Sender: FDA-Public Use
  Company Number: NL-SEATTLE GENETICS-2016SGN00435

PATIENT

DRUGS (7)
  1. MELPHALAN [Suspect]
     Active Substance: MELPHALAN
     Indication: HODGKIN^S DISEASE
     Dosage: 278 MG, UNK
     Route: 048
     Dates: start: 20150831
  2. DEXAMETHASONE. [Suspect]
     Active Substance: DEXAMETHASONE
     Indication: HODGKIN^S DISEASE
     Dosage: UNK
     Route: 048
  3. CYTARABINE. [Suspect]
     Active Substance: CYTARABINE
     Indication: HODGKIN^S DISEASE
     Dosage: 1592 MG, UNK
     Route: 042
     Dates: start: 20150827
  4. ETOPOSIDE. [Suspect]
     Active Substance: ETOPOSIDE
     Indication: HODGKIN^S DISEASE
     Dosage: 1592 MG, UNK
     Route: 042
     Dates: start: 20150827
  5. CISPLATIN. [Suspect]
     Active Substance: CISPLATIN
     Indication: HODGKIN^S DISEASE
     Route: 042
  6. CARMUSTINE [Suspect]
     Active Substance: CARMUSTINE
     Indication: HODGKIN^S DISEASE
     Dosage: 597 MG, UNK
     Route: 042
     Dates: start: 20150826
  7. BRENTUXIMAB VEDOTIN [Suspect]
     Active Substance: BRENTUXIMAB VEDOTIN
     Indication: HODGKIN^S DISEASE
     Dosage: UNK
     Route: 042

REACTIONS (2)
  - Respiratory failure [Not Recovered/Not Resolved]
  - Meningitis pneumococcal [Recovered/Resolved with Sequelae]

NARRATIVE: CASE EVENT DATE: 20160219
